FAERS Safety Report 10334791 (Version 2)
Quarter: 2014Q3

REPORT INFORMATION
  Report Type: Spontaneous
  Country: US (occurrence: US)
  Receive Date: 20140723
  Receipt Date: 20140723
  Transmission Date: 20150326
  Serious: Yes (Hospitalization, Other)
  Sender: FDA-Public Use
  Company Number: US-009507513-2011SP003682

PATIENT
  Sex: Female

DRUGS (1)
  1. NUVARING [Suspect]
     Active Substance: ETHINYL ESTRADIOL\ETONOGESTREL
     Indication: CONTRACEPTION
     Dates: start: 20080530, end: 200902

REACTIONS (7)
  - Pulmonary embolism [Recovered/Resolved]
  - Pulmonary infarction [Unknown]
  - Headache [Unknown]
  - Unintended pregnancy [Recovered/Resolved]
  - Gastrooesophageal reflux disease [Unknown]
  - Abortion induced [Recovered/Resolved]
  - Chlamydia test positive [Unknown]

NARRATIVE: CASE EVENT DATE: 20080801
